FAERS Safety Report 25033307 (Version 1)
Quarter: 2025Q1

REPORT INFORMATION
  Report Type: Spontaneous
  Country: RU (occurrence: RU)
  Receive Date: 20250303
  Receipt Date: 20250303
  Transmission Date: 20250409
  Serious: Yes (Hospitalization)
  Sender: ELI LILLY AND COMPANY
  Company Number: RU-ELI_LILLY_AND_COMPANY-RU202502020318

PATIENT
  Age: 27 Year
  Sex: Female
  Weight: 65 kg

DRUGS (7)
  1. HUMALOG [Suspect]
     Active Substance: INSULIN LISPRO
     Indication: Type 1 diabetes mellitus
     Dosage: 10 U, DAILY
     Route: 058
     Dates: start: 20220721, end: 20220721
  2. HUMALOG [Suspect]
     Active Substance: INSULIN LISPRO
     Indication: Diabetic nephropathy
     Dosage: 12 U, BID
     Route: 058
     Dates: start: 20220721, end: 20220721
  3. HUMALOG [Suspect]
     Active Substance: INSULIN LISPRO
     Indication: Chronic kidney disease
     Dosage: 10 U, DAILY (RESTARTED DOSE)
     Route: 058
  4. HUMALOG [Suspect]
     Active Substance: INSULIN LISPRO
     Indication: Diabetic neuropathy
     Dosage: 12 U, BID (RESTARTED DOSE)
     Route: 058
  5. POTASSIUM IODIDE [Concomitant]
     Active Substance: POTASSIUM IODIDE
     Indication: Product used for unknown indication
     Dosage: 15 UG, DAILY
     Route: 048
     Dates: start: 20210525
  6. CHOLECALCIFEROL [Concomitant]
     Active Substance: CHOLECALCIFEROL
     Indication: Product used for unknown indication
     Dosage: 2000 INTERNATIONAL UNIT, DAILY
     Route: 048
     Dates: start: 20210525
  7. ENALAPRIL [Concomitant]
     Active Substance: ENALAPRIL
     Indication: Product used for unknown indication
     Route: 048
     Dates: start: 20200306

REACTIONS (1)
  - Hyperglycaemia [Recovering/Resolving]

NARRATIVE: CASE EVENT DATE: 20220721
